FAERS Safety Report 12435405 (Version 1)
Quarter: 2016Q2

REPORT INFORMATION
  Report Type: Spontaneous
  Country: US (occurrence: US)
  Receive Date: 20160603
  Receipt Date: 20160603
  Transmission Date: 20160815
  Serious: No
  Sender: FDA-Public Use
  Company Number: US-ROCHE-1610951

PATIENT
  Sex: Female
  Weight: 77.18 kg

DRUGS (2)
  1. XELODA [Suspect]
     Active Substance: CAPECITABINE
     Dosage: 2 TWICE DAILY 7 DAYS ON AND 7 DAYS OFF
     Route: 048
     Dates: start: 20150319
  2. XELODA [Suspect]
     Active Substance: CAPECITABINE
     Indication: BREAST CANCER
     Dosage: 3 TWICE DAILY 7 DAYS ON AND 7 DAYS OFF
     Route: 048
     Dates: start: 20150319

REACTIONS (1)
  - Pneumonia [Unknown]
